FAERS Safety Report 4675375-9 (Version None)
Quarter: 2005Q2

REPORT INFORMATION
  Report Type: 
  Country: None (occurrence: None)
  Receive Date: 20050525
  Receipt Date: 20050517
  Transmission Date: 20051028
  Serious: Yes (Other)
  Sender: FDA-Public Use
  Company Number: B0381425A

PATIENT

DRUGS (2)
  1. HYCAMTIN [Suspect]
     Indication: GLIOBLASTOMA MULTIFORME
     Dosage: .5 MG/ INTRAVENOUS
     Route: 042
  2. RADIOTHERAPY (RADIOTHERAPY) [Suspect]
     Indication: GLIOBLASTOMA MULTIFORME

REACTIONS (4)
  - CATATONIA [None]
  - DEPRESSED LEVEL OF CONSCIOUSNESS [None]
  - MOTOR DYSFUNCTION [None]
  - STUPOR [None]
